FAERS Safety Report 12340474 (Version 1)
Quarter: 2016Q2

REPORT INFORMATION
  Report Type: Spontaneous
  Country: US (occurrence: None)
  Receive Date: 20160505
  Receipt Date: 20160505
  Transmission Date: 20160815
  Serious: Yes (Disabling)
  Sender: FDA-Public Use
  Company Number: None

PATIENT
  Age: 58 Year
  Sex: Female
  Weight: 89.36 kg

DRUGS (24)
  1. NATURE-THROID [Concomitant]
     Active Substance: THYROID, PORCINE
  2. ESTROVEN [Concomitant]
     Active Substance: DIETARY SUPPLEMENT
  3. L-LYSINE AMINO ACID [Concomitant]
  4. LISINOPRIL. [Concomitant]
     Active Substance: LISINOPRIL
  5. MODAFINIL. [Concomitant]
     Active Substance: MODAFINIL
  6. ZINC [Concomitant]
     Active Substance: ZINC\ZINC CHLORIDE
  7. THYROID [Suspect]
     Active Substance: LEVOTHYROXINE\LIOTHYRONINE
     Indication: AUTOIMMUNE THYROIDITIS
     Dosage: 1 TABLET(S) IN THE MORNING TAKEN BY MOUTH
     Route: 048
     Dates: start: 20151015, end: 20160501
  8. CLONAZEPAM. [Concomitant]
     Active Substance: CLONAZEPAM
  9. ORTHOPEDIC WRIST BRACE [Concomitant]
  10. METAGENICS MYOCALM PM [Concomitant]
  11. L-CARNITINE AMINO ACID [Concomitant]
  12. METAGENICS SERENAGEN [Concomitant]
  13. FLUTICASONE [Concomitant]
     Active Substance: FLUTICASONE\FLUTICASONE PROPIONATE
  14. NICOTINE TRANSDERMAL SYSTEM [Concomitant]
     Active Substance: NICOTINE
  15. EMERGEN-C VITAMIN C POWDER [Concomitant]
  16. COMPLETE AMINO ACID [Concomitant]
  17. COD LIVER OIL [Concomitant]
     Active Substance: COD LIVER OIL
  18. VITAMIN B-2 [Concomitant]
  19. APPLE CIDER VINEGAR CAPSULE [Concomitant]
  20. METAGENICS ADRESET [Concomitant]
  21. LICORICE ROOT/ELEUTHERO LIQUID [Concomitant]
  22. C-PAP MACHINE [Concomitant]
     Active Substance: DEVICE
  23. LIQUID VITAMIN D [Concomitant]
  24. MULTIVITAMIN FOR WOMEN 50+ [Concomitant]

REACTIONS (23)
  - Raynaud^s phenomenon [None]
  - Sleep attacks [None]
  - Back disorder [None]
  - Mouth swelling [None]
  - Amino acid level increased [None]
  - Drug ineffective [None]
  - Panic attack [None]
  - Hypothyroidism [None]
  - Joint crepitation [None]
  - Orthostatic hypotension [None]
  - Arthralgia [None]
  - Hypoglycaemia [None]
  - Swollen tongue [None]
  - Blood glucose increased [None]
  - Rebound effect [None]
  - Sleep disorder [None]
  - Sinusitis [None]
  - Impaired healing [None]
  - Condition aggravated [None]
  - Dysgeusia [None]
  - Hypovitaminosis [None]
  - Dry mouth [None]
  - Product contamination [None]

NARRATIVE: CASE EVENT DATE: 20151015
